FAERS Safety Report 24194017 (Version 1)
Quarter: 2024Q3

REPORT INFORMATION
  Report Type: Spontaneous
  Country: GB (occurrence: GB)
  Receive Date: 20240809
  Receipt Date: 20240809
  Transmission Date: 20241016
  Serious: Yes (Other)
  Sender: AUROBINDO
  Company Number: GB-MHRA-TPP19250208C9433810YC1721401292676

PATIENT
  Age: 69 Year
  Sex: Male
  Weight: 64 kg

DRUGS (5)
  1. ATORVASTATIN [Suspect]
     Active Substance: ATORVASTATIN
     Indication: Product used for unknown indication
     Dosage: 20 MILLIGRAM
     Route: 065
  2. EZETIMIBE [Suspect]
     Active Substance: EZETIMIBE
     Indication: Ill-defined disorder
     Dosage: 1 DOSAGE FORM, ONCE A DAY
     Route: 065
     Dates: start: 20240507
  3. ACLIDINIUM BROMIDE\FORMOTEROL FUMARATE [Concomitant]
     Active Substance: ACLIDINIUM BROMIDE\FORMOTEROL FUMARATE
     Indication: Ill-defined disorder
     Dosage: 1 DOSAGE FORM, TWO TIMES A DAY
     Dates: start: 20220614
  4. EASYHALER [Concomitant]
     Indication: Ill-defined disorder
     Dosage: UNK UNK, AS NECESSARY (INHALE 1 DOSE AS NEEDED)
     Route: 065
     Dates: start: 20240615
  5. ALBUTEROL [Concomitant]
     Active Substance: ALBUTEROL
     Indication: Ill-defined disorder
     Dosage: UNK UNK, AS NECESSARY (INHALE 1-2 DOSES AS NEEDED UP TO FOUR TIMES A DAY)
     Dates: start: 20230116

REACTIONS (3)
  - Lymphadenopathy [Recovered/Resolved]
  - Rash [Unknown]
  - Testicular swelling [Unknown]
